FAERS Safety Report 14879932 (Version 1)
Quarter: 2018Q2

REPORT INFORMATION
  Report Type: Spontaneous
  Country: US (occurrence: US)
  Receive Date: 20180425
  Receipt Date: 20180425
  Transmission Date: 20180711
  Serious: Yes (Disabling, Other)
  Sender: FDA-Public Use
  Company Number: None

PATIENT
  Age: 52 Year
  Sex: Female
  Weight: 76.5 kg

DRUGS (18)
  1. VIT B [Concomitant]
     Active Substance: VITAMIN B
  2. VITAMIN C [Concomitant]
     Active Substance: ASCORBIC ACID
  3. COQ10 [Concomitant]
     Active Substance: UBIDECARENONE
  4. MELATONIN [Concomitant]
     Active Substance: MELATONIN
  5. ATENOLOL. [Concomitant]
     Active Substance: ATENOLOL
  6. VITAMIN D3 [Concomitant]
     Active Substance: CHOLECALCIFEROL
  7. MAGNESIUM [Concomitant]
     Active Substance: MAGNESIUM
  8. PROBIOTICS [Concomitant]
     Active Substance: PROBIOTICS NOS
  9. BONE BROTH [Concomitant]
  10. COLLAGEN [Concomitant]
     Active Substance: COLLAGEN
  11. CBD OIL [Concomitant]
     Active Substance: CANNABIDIOL
  12. DIGESTIVE ENZYMES [Concomitant]
     Active Substance: UNSPECIFIED INGREDIENT
  13. CIPROFLOXACIN HCL [Suspect]
     Active Substance: CIPROFLOXACIN HYDROCHLORIDE
     Indication: PROPHYLAXIS
     Route: 048
     Dates: start: 20030611, end: 20030615
  14. FLUTICASONE. [Concomitant]
     Active Substance: FLUTICASONE
  15. NAPROXEN. [Concomitant]
     Active Substance: NAPROXEN
  16. RIZATRIPTAN. [Concomitant]
     Active Substance: RIZATRIPTAN
  17. FLUOXETINE [Concomitant]
     Active Substance: FLUOXETINE HYDROCHLORIDE
  18. TURMERIC [Concomitant]
     Active Substance: HERBALS\TURMERIC

REACTIONS (6)
  - Tissue injury [None]
  - Mitochondrial cytopathy [None]
  - Gait inability [None]
  - Gastrointestinal disorder [None]
  - Collagen disorder [None]
  - Muscle atrophy [None]

NARRATIVE: CASE EVENT DATE: 20030611
